FAERS Safety Report 5877322-0 (Version None)
Quarter: 2008Q3

REPORT INFORMATION
  Report Type: 
  Country: None (occurrence: None)
  Receive Date: 20080910
  Receipt Date: 20080904
  Transmission Date: 20090109
  Serious: Yes (Other)
  Sender: FDA-Public Use
  Company Number: US-AMGEN-QUU305951

PATIENT
  Sex: Female

DRUGS (4)
  1. ENBREL [Suspect]
     Indication: PSORIASIS
     Route: 058
     Dates: start: 19990101
  2. ENBREL [Suspect]
     Indication: PSORIATIC ARTHROPATHY
  3. REMICADE [Concomitant]
  4. VYTORIN [Concomitant]

REACTIONS (18)
  - BLOOD CHOLESTEROL INCREASED [None]
  - DEPRESSED MOOD [None]
  - DEPRESSION [None]
  - DIABETES MELLITUS [None]
  - DRUG INTERACTION [None]
  - GAIT DISTURBANCE [None]
  - HOT FLUSH [None]
  - HYPOKINESIA [None]
  - INJECTION SITE IRRITATION [None]
  - LOWER RESPIRATORY TRACT INFECTION [None]
  - NASOPHARYNGITIS [None]
  - PARAESTHESIA [None]
  - PSORIASIS [None]
  - PSORIATIC ARTHROPATHY [None]
  - SINUSITIS [None]
  - STRESS [None]
  - URINARY TRACT INFECTION [None]
  - WEIGHT FLUCTUATION [None]
